FAERS Safety Report 23782260 (Version 2)
Quarter: 2025Q2

REPORT INFORMATION
  Report Type: Spontaneous
  Country: US (occurrence: US)
  Receive Date: 20240425
  Receipt Date: 20250626
  Transmission Date: 20250717
  Serious: Yes (Death, Life-Threatening, Hospitalization, Other)
  Sender: ACCORD
  Company Number: US-Accord-420474

PATIENT
  Age: 51 Year
  Sex: Female

DRUGS (4)
  1. METHOTREXATE [Suspect]
     Active Substance: METHOTREXATE
     Indication: Rheumatoid arthritis
  2. APIXABAN [Concomitant]
     Active Substance: APIXABAN
     Indication: Pulmonary embolism
  3. PREDNISONE [Concomitant]
     Active Substance: PREDNISONE
     Indication: Rheumatoid arthritis
  4. METHOTREXATE [Suspect]
     Active Substance: METHOTREXATE
     Indication: Rheumatoid arthritis

REACTIONS (15)
  - Pancytopenia [Fatal]
  - Acute kidney injury [Fatal]
  - Lactic acidosis [Fatal]
  - Escherichia infection [Fatal]
  - Septic shock [Fatal]
  - Cardiac arrest [Fatal]
  - Inappropriate schedule of product administration [Fatal]
  - Toxicity to various agents [Fatal]
  - Hypotension [Fatal]
  - Acute hepatic failure [Fatal]
  - Klebsiella infection [Fatal]
  - Anticoagulation drug level above therapeutic [Fatal]
  - Gastrointestinal haemorrhage [Fatal]
  - Mucosal ulceration [Unknown]
  - Mouth ulceration [Unknown]
